FAERS Safety Report 12059272 (Version 2)
Quarter: 2016Q2

REPORT INFORMATION
  Report Type: Not Available
  Country: FR (occurrence: FR)
  Receive Date: 20160210
  Receipt Date: 20160426
  Transmission Date: 20160815
  Serious: Yes (Hospitalization)
  Sender: FDA-Public Use
  Company Number: FR-MUNDIPHARMA DS AND PHARMACOVIGILANCE-GBR-2016-0033741

PATIENT
  Age: 56 Year
  Sex: Male

DRUGS (26)
  1. LARGACTIL                          /00011901/ [Suspect]
     Active Substance: CHLORPROMAZINE
     Indication: VOMITING
  2. TRANXENE T-TAB [Suspect]
     Active Substance: CLORAZEPATE DIPOTASSIUM
     Indication: PRODUCT USED FOR UNKNOWN INDICATION
     Dosage: UNK UNK, SINGLE
     Route: 048
     Dates: start: 20150621, end: 20150621
  3. ALPRAZOLAM. [Suspect]
     Active Substance: ALPRAZOLAM
     Indication: PRODUCT USED FOR UNKNOWN INDICATION
     Dosage: UNK
     Route: 048
     Dates: start: 20150604, end: 20150622
  4. VFEND [Concomitant]
     Active Substance: VORICONAZOLE
     Dosage: UNK
     Dates: start: 20150629, end: 20150630
  5. AMIKACINE                          /00391001/ [Suspect]
     Active Substance: AMIKACIN
     Indication: LUNG DISORDER
     Dosage: UNK
     Route: 042
     Dates: start: 20150617, end: 20150622
  6. PRIMPERAN [Suspect]
     Active Substance: METOCLOPRAMIDE HYDROCHLORIDE
     Indication: VOMITING
  7. GAVISCON                           /00237601/ [Concomitant]
     Active Substance: ALUMINUM HYDROXIDE\MAGNESIUM CARBONATE
     Dosage: UNK
     Dates: start: 20150617, end: 20150622
  8. IMIPENEM AND CILASTATIN [Concomitant]
     Active Substance: CILASTATIN SODIUM\IMIPENEM
     Dosage: UNK
     Dates: start: 20150628
  9. CYTARABINE. [Suspect]
     Active Substance: CYTARABINE
     Indication: ACUTE MYELOID LEUKAEMIA
     Dosage: UNK
     Route: 042
     Dates: start: 20150611, end: 20150617
  10. PRIMPERAN [Suspect]
     Active Substance: METOCLOPRAMIDE HYDROCHLORIDE
     Indication: NAUSEA
     Dosage: UNK
     Route: 065
     Dates: start: 20150612, end: 20150624
  11. TAZOCILLINE [Concomitant]
     Active Substance: PIPERACILLIN SODIUM\TAZOBACTAM SODIUM
  12. VANCOMYCINE [Concomitant]
     Active Substance: VANCOMYCIN
     Dosage: UNK
     Route: 042
     Dates: start: 20150618, end: 20150619
  13. CANCIDAS [Concomitant]
     Active Substance: CASPOFUNGIN ACETATE
     Dosage: UNK
     Dates: start: 20150622
  14. CERUBIDINE [Suspect]
     Active Substance: DAUNORUBICIN HYDROCHLORIDE
     Indication: ACUTE MYELOID LEUKAEMIA
     Dosage: UNK
     Route: 042
     Dates: start: 20150611, end: 20150614
  15. VANCOMYCINE [Concomitant]
     Active Substance: VANCOMYCIN
     Indication: LUNG DISORDER
     Dosage: UNK
     Dates: start: 20150622
  16. CANCIDAS [Concomitant]
     Active Substance: CASPOFUNGIN ACETATE
     Dosage: UNK
     Dates: start: 20150618, end: 20150619
  17. ACICLOVIR [Concomitant]
     Active Substance: ACYCLOVIR
     Dosage: UNK
     Dates: start: 20150617
  18. FLAGYL [Concomitant]
     Active Substance: METRONIDAZOLE\METRONIDAZOLE HYDROCHLORIDE
     Dosage: UNK
     Dates: start: 20150622
  19. LASILIX                            /00032601/ [Concomitant]
     Active Substance: FUROSEMIDE
     Dosage: UNK, SINGLE
     Dates: start: 20150621, end: 20150621
  20. TIORFAN [Concomitant]
     Active Substance: RACECADOTRIL
     Dosage: UNK
     Dates: start: 20150619, end: 20150622
  21. POLARAMINE [Suspect]
     Active Substance: DEXCHLORPHENIRAMINE MALEATE
     Indication: PRODUCT USED FOR UNKNOWN INDICATION
     Dosage: UNK
     Route: 065
     Dates: start: 20150609, end: 20150623
  22. OXYNORM [Suspect]
     Active Substance: OXYCODONE HYDROCHLORIDE
     Indication: PRODUCT USED FOR UNKNOWN INDICATION
     Dosage: UNK
     Route: 065
     Dates: start: 20150617, end: 20150623
  23. TIORFAN [Concomitant]
     Active Substance: RACECADOTRIL
     Dosage: UNK
     Dates: start: 20150626
  24. LASILIX                            /00032601/ [Concomitant]
     Active Substance: FUROSEMIDE
     Dosage: UNK
     Dates: start: 20150624, end: 20150625
  25. LARGACTIL                          /00011901/ [Suspect]
     Active Substance: CHLORPROMAZINE
     Indication: NAUSEA
     Dosage: UNK
     Route: 048
     Dates: start: 20150616, end: 20150619
  26. TIORFAN [Concomitant]
     Active Substance: RACECADOTRIL
     Dosage: UNK
     Dates: start: 20150609, end: 20150615

REACTIONS (3)
  - Hypernatraemia [Recovered/Resolved]
  - Nephropathy toxic [Recovered/Resolved]
  - Hypokalaemia [Recovered/Resolved]

NARRATIVE: CASE EVENT DATE: 20150622
